FAERS Safety Report 7989640-0 (Version None)
Quarter: 2011Q4

REPORT INFORMATION
  Report Type: 
  Country: None (occurrence: None)
  Receive Date: 20111219
  Receipt Date: 20111208
  Transmission Date: 20120403
  Serious: Yes (Death)
  Sender: FDA-Public Use
  Company Number: AU-SANOFI-AVENTIS-2011SA065715

PATIENT
  Age: 77 Year
  Sex: Female

DRUGS (12)
  1. ARAVA [Suspect]
     Route: 048
     Dates: start: 20090302
  2. ENDEP [Concomitant]
  3. RABEPRAZOLE SODIUM [Concomitant]
  4. ALL OTHER THERAPEUTIC PRODUCTS [Concomitant]
  5. AMITRIPTYLINE HCL [Concomitant]
  6. FOLIC ACID [Concomitant]
  7. CONJUGATED ESTROGENS [Concomitant]
  8. OXYCODONE HCL [Concomitant]
  9. ACETAMINOPHEN [Concomitant]
  10. PREDNISONE TAB [Concomitant]
  11. OXYCONTIN [Concomitant]
  12. SOLONE [Concomitant]

REACTIONS (1)
  - DEATH [None]
